FAERS Safety Report 7529827-4 (Version None)
Quarter: 2011Q2

REPORT INFORMATION
  Report Type: 
  Country: None (occurrence: None)
  Receive Date: 20110607
  Receipt Date: 20110601
  Transmission Date: 20111010
  Serious: Yes (Other)
  Sender: FDA-Public Use
  Company Number: US-JNJFOC-20110509336

PATIENT
  Sex: Female

DRUGS (3)
  1. FENTANYL-100 [Suspect]
     Indication: RHEUMATOID ARTHRITIS
     Route: 062
     Dates: start: 20110301, end: 20110429
  2. PLAQUENIL [Concomitant]
     Indication: RHEUMATOID ARTHRITIS
     Route: 048
  3. FENTANYL-100 [Suspect]
     Indication: RHEUMATOID ARTHRITIS
     Dosage: NDC: 0781-7242-55
     Route: 062
     Dates: start: 20110429

REACTIONS (5)
  - RHEUMATOID ARTHRITIS [None]
  - DRUG INEFFECTIVE [None]
  - WITHDRAWAL SYNDROME [None]
  - TREMOR [None]
  - FORMICATION [None]
